FAERS Safety Report 6760406-2 (Version None)
Quarter: 2010Q2

REPORT INFORMATION
  Report Type: 
  Country: None (occurrence: None)
  Receive Date: 20100604
  Receipt Date: 20100520
  Transmission Date: 20101027
  Serious: Yes (Death, Hospitalization)
  Sender: FDA-Public Use
  Company Number: APP201000509

PATIENT
  Age: 52 Year
  Sex: Male

DRUGS (1)
  1. DACARBAZINE [Suspect]
     Indication: MALIGNANT MELANOMA
     Dosage: 1560 MG, ONCE, INTRAVENOUS
     Route: 042

REACTIONS (5)
  - DYSPNOEA EXERTIONAL [None]
  - GASTROINTESTINAL PERFORATION [None]
  - GENERAL PHYSICAL CONDITION ABNORMAL [None]
  - LEUKOCYTOSIS [None]
  - THROMBOCYTOSIS [None]
